FAERS Safety Report 13373621 (Version 8)
Quarter: 2017Q4

REPORT INFORMATION
  Report Type: Report from Study
  Country: US (occurrence: US)
  Receive Date: 20170327
  Receipt Date: 20171027
  Transmission Date: 20180320
  Serious: Yes (Hospitalization, Other)
  Sender: FDA-Public Use
  Company Number: US-JNJFOC-20170321648

PATIENT
  Age: 83 Year
  Sex: Male

DRUGS (14)
  1. RAPAFLO [Concomitant]
     Active Substance: SILODOSIN
  2. GAZYVA [Concomitant]
     Active Substance: OBINUTUZUMAB
  3. IMBRUVICA [Suspect]
     Active Substance: IBRUTINIB
     Indication: MANTLE CELL LYMPHOMA
     Route: 048
     Dates: start: 20170304, end: 2017
  4. DESMOPRESSIN ACETATE. [Concomitant]
     Active Substance: DESMOPRESSIN ACETATE
  5. IMBRUVICA [Suspect]
     Active Substance: IBRUTINIB
     Indication: B-CELL SMALL LYMPHOCYTIC LYMPHOMA
     Route: 048
     Dates: start: 20170304, end: 2017
  6. IMBRUVICA [Suspect]
     Active Substance: IBRUTINIB
     Indication: B-CELL SMALL LYMPHOCYTIC LYMPHOMA
     Route: 048
     Dates: start: 20170305
  7. IMBRUVICA [Suspect]
     Active Substance: IBRUTINIB
     Indication: B-CELL SMALL LYMPHOCYTIC LYMPHOMA
     Route: 048
     Dates: start: 20170314, end: 20170928
  8. IMBRUVICA [Suspect]
     Active Substance: IBRUTINIB
     Indication: MANTLE CELL LYMPHOMA
     Route: 048
     Dates: start: 20170314, end: 20170928
  9. FINASTERIDE. [Concomitant]
     Active Substance: FINASTERIDE
  10. IMBRUVICA [Suspect]
     Active Substance: IBRUTINIB
     Indication: B-CELL SMALL LYMPHOCYTIC LYMPHOMA
     Route: 048
     Dates: start: 201701
  11. IMBRUVICA [Suspect]
     Active Substance: IBRUTINIB
     Indication: MANTLE CELL LYMPHOMA
     Route: 048
     Dates: start: 20170305
  12. ZOLOFT [Concomitant]
     Active Substance: SERTRALINE HYDROCHLORIDE
  13. IMBRUVICA [Suspect]
     Active Substance: IBRUTINIB
     Indication: MANTLE CELL LYMPHOMA
     Route: 048
     Dates: start: 201701
  14. ASPIRIN. [Suspect]
     Active Substance: ASPIRIN
     Indication: PRODUCT USED FOR UNKNOWN INDICATION
     Route: 065

REACTIONS (21)
  - Oedema peripheral [Not Recovered/Not Resolved]
  - Haemothorax [Recovering/Resolving]
  - Heart rate increased [Unknown]
  - Diarrhoea [Unknown]
  - Atrial fibrillation [Unknown]
  - Pollakiuria [Not Recovered/Not Resolved]
  - Haemorrhage subcutaneous [Unknown]
  - Joint swelling [Unknown]
  - Increased tendency to bruise [Unknown]
  - Dermatitis [Unknown]
  - Dyspnoea [Unknown]
  - Erythema [Unknown]
  - White blood cell count increased [Recovering/Resolving]
  - Peripheral venous disease [Not Recovered/Not Resolved]
  - Aspiration [Unknown]
  - Feeling hot [Unknown]
  - Rash macular [Not Recovered/Not Resolved]
  - Peripheral swelling [Recovering/Resolving]
  - Paronychia [Unknown]
  - Anaemia [Recovered/Resolved]
  - Skin ulcer [Recovering/Resolving]

NARRATIVE: CASE EVENT DATE: 201703
